FAERS Safety Report 4615853-1 (Version None)
Quarter: 2005Q2

REPORT INFORMATION
  Report Type: 
  Country: None (occurrence: None)
  Receive Date: 20050311
  Receipt Date: 20041101
  Transmission Date: 20051028
  Serious: No
  Sender: FDA-Public Use
  Company Number: 2004-BP-11157BP

PATIENT
  Age: 74 Year
  Sex: Male

DRUGS (8)
  1. SPIRIVA [Suspect]
     Indication: CHRONIC OBSTRUCTIVE PULMONARY DISEASE
     Dosage: 18 MCG (18 MCG), IH
     Route: 055
     Dates: start: 20040901
  2. SPIRIVA [Suspect]
     Indication: EMPHYSEMA
     Dosage: 18 MCG (18 MCG), IH
     Route: 055
     Dates: start: 20040901
  3. . [Suspect]
  4. HYZAAR [Concomitant]
  5. ZOCOR [Concomitant]
  6. PROVENTIL (SALBUTAMOL SULFATE) [Concomitant]
  7. NORVASC [Concomitant]
  8. FLOMAX [Concomitant]

REACTIONS (2)
  - FEELING ABNORMAL [None]
  - SLUGGISHNESS [None]
